FAERS Safety Report 9207076 (Version 2)
Quarter: 2014Q1

REPORT INFORMATION
  Report Type: Report from Study
  Country: US (occurrence: US)
  Receive Date: 20130403
  Receipt Date: 20140217
  Transmission Date: 20141002
  Serious: Yes (Disabling)
  Sender: FDA-Public Use
  Company Number: PHEH2013US007489

PATIENT
  Sex: Female

DRUGS (2)
  1. GILENYA [Suspect]
     Indication: MULTIPLE SCLEROSIS
     Dosage: 0.5 MG, QD
     Route: 048
  2. REVATIO [Concomitant]
     Indication: PULMONARY HYPERTENSION

REACTIONS (9)
  - Pulmonary hypertension [Not Recovered/Not Resolved]
  - Cardiac disorder [Not Recovered/Not Resolved]
  - General physical health deterioration [Not Recovered/Not Resolved]
  - Lethargy [Unknown]
  - Abdominal pain [Unknown]
  - Dyspepsia [Unknown]
  - Thinking abnormal [Unknown]
  - Dyspnoea [Unknown]
  - Prescribed underdose [Unknown]
